FAERS Safety Report 9437471 (Version 3)
Quarter: 2013Q4

REPORT INFORMATION
  Report Type: Report from Study
  Country: JP (occurrence: JP)
  Receive Date: 20130802
  Receipt Date: 20131119
  Transmission Date: 20140711
  Serious: Yes (Death)
  Sender: FDA-Public Use
  Company Number: JP-009507513-1308JPN000687

PATIENT
  Age: 98 Year
  Sex: Female
  Weight: 45 kg

DRUGS (1)
  1. JANUVIA TABLETS 50MG [Suspect]
     Indication: TYPE 2 DIABETES MELLITUS
     Dosage: 50 MG, QD
     Route: 048
     Dates: start: 20120621, end: 20130610

REACTIONS (2)
  - Dehydration [Fatal]
  - Marasmus [Fatal]
